FAERS Safety Report 22360713 (Version 1)
Quarter: 2023Q2

REPORT INFORMATION
  Report Type: Spontaneous
  Country: None (occurrence: US)
  Receive Date: 20230524
  Receipt Date: 20230524
  Transmission Date: 20230722
  Serious: Yes (Other)
  Sender: FDA-Public Use
  Company Number: US-Performance Health, LLC-2141951

PATIENT
  Sex: Female

DRUGS (2)
  1. BIOFREEZE [Suspect]
     Active Substance: MENTHOL
     Indication: Analgesic therapy
     Route: 061
  2. Ice Pack. Brand unknown [Concomitant]

REACTIONS (1)
  - Dermatitis [Recovering/Resolving]
